FAERS Safety Report 6638451-7 (Version None)
Quarter: 2010Q1

REPORT INFORMATION
  Report Type: 
  Country: None (occurrence: None)
  Receive Date: 20100316
  Receipt Date: 20100316
  Transmission Date: 20100710
  Serious: Yes (Other)
  Sender: FDA-Public Use
  Company Number: None

PATIENT
  Sex: Female
  Weight: 15.4223 kg

DRUGS (3)
  1. TYLENOL MELTAWAYS 80 MG EACH MCNEIL - PPC INC. [Suspect]
     Indication: FALL
     Dosage: 2 TABLETS 4 TO 6 HRS BY MOUTH
     Route: 048
     Dates: start: 20100111, end: 20100115
  2. TYLENOL MELTAWAYS 80 MG EACH MCNEIL - PPC INC. [Suspect]
     Indication: PAIN IN EXTREMITY
     Dosage: 2 TABLETS 4 TO 6 HRS BY MOUTH
     Route: 048
     Dates: start: 20100111, end: 20100115
  3. TYLENOL MELTAWAYS 80 MG EACH MCNEIL - PPC INC. [Suspect]
     Indication: TEETHING
     Dosage: 2 TABLETS 4 TO 6 HRS BY MOUTH
     Route: 048
     Dates: start: 20100111, end: 20100115

REACTIONS (5)
  - DIARRHOEA [None]
  - NAUSEA [None]
  - POOR QUALITY DRUG ADMINISTERED [None]
  - PYREXIA [None]
  - VOMITING [None]
